FAERS Safety Report 8293610-5 (Version None)
Quarter: 2012Q2

REPORT INFORMATION
  Report Type: 
  Country: None (occurrence: None)
  Receive Date: 20120418
  Receipt Date: 20120409
  Transmission Date: 20120825
  Serious: No
  Sender: FDA-Public Use
  Company Number: US-BIOGENIDEC-2012BI012463

PATIENT
  Sex: Female

DRUGS (3)
  1. AVONEX [Concomitant]
     Route: 030
     Dates: start: 20060502, end: 20071003
  2. TYSABRI [Suspect]
     Indication: MULTIPLE SCLEROSIS
     Route: 042
     Dates: start: 20071211, end: 20100208
  3. AVONEX [Concomitant]
     Indication: MULTIPLE SCLEROSIS
     Route: 030
     Dates: start: 20020513

REACTIONS (2)
  - HYPOAESTHESIA [None]
  - ABASIA [None]
